FAERS Safety Report 4881289-1 (Version None)
Quarter: 2006Q1

REPORT INFORMATION
  Report Type: 
  Country: None (occurrence: None)
  Receive Date: 20060112
  Receipt Date: 20060105
  Transmission Date: 20060701
  Serious: Yes (Hospitalization)
  Sender: FDA-Public Use
  Company Number: SUS1-2006-00028

PATIENT
  Age: 52 Year
  Sex: Female
  Weight: 59 kg

DRUGS (3)
  1. ADDERALL (DEXTROAMPHETAMINE SULFATE, DEXTROAMPHETAMINE SACCHARATE, AMP [Suspect]
     Indication: ATTENTION DEFICIT/HYPERACTIVITY DISORDER
     Dates: start: 20050101
  2. ADDERALL (DEXTROAMPHETAMINE SULFATE, DEXTROAMPHETAMINE SACCHARATE, AMP [Suspect]
     Indication: PSYCHOMOTOR HYPERACTIVITY
     Dates: start: 20050101
  3. PAIN MEDICATION [Concomitant]

REACTIONS (2)
  - BODY TEMPERATURE INCREASED [None]
  - CONFUSIONAL STATE [None]
